FAERS Safety Report 16657701 (Version 1)
Quarter: 2019Q3

REPORT INFORMATION
  Report Type: Spontaneous
  Country: CN (occurrence: CN)
  Receive Date: 20190801
  Receipt Date: 20190801
  Transmission Date: 20191004
  Serious: Yes (Other)
  Sender: FDA-Public Use
  Company Number: CN-BAXTER-2019BAX014655

PATIENT
  Age: 74 Year
  Sex: Male

DRUGS (3)
  1. CEFMETAZOLE SODIUM [Suspect]
     Active Substance: CEFMETAZOLE SODIUM
     Indication: ANAL ABSCESS
     Dosage: AS PART OF CEFMETAZOLE SODIUM + 0.9% NS 250ML
     Route: 041
     Dates: start: 20190717, end: 20190718
  2. METRONIDAZOLE AND SODIUM CHLORIDE INJECTION [Suspect]
     Active Substance: METRONIDAZOLE\SODIUM CHLORIDE
     Indication: ANAL ABSCESS
     Route: 041
     Dates: start: 20190717, end: 20190717
  3. 0.9% SODIUM CHLORIDE INJECTION [Suspect]
     Active Substance: SODIUM CHLORIDE
     Indication: MEDICATION DILUTION
     Dosage: AS PART OF CEFMETAZOLE SODIUM + 0.9% NS 250ML
     Route: 041
     Dates: start: 20190717, end: 20190718

REACTIONS (4)
  - Dermatitis allergic [Recovering/Resolving]
  - Eyelid oedema [Unknown]
  - Conjunctival hyperaemia [Unknown]
  - Vomiting [Unknown]

NARRATIVE: CASE EVENT DATE: 20190717
